FAERS Safety Report 9182709 (Version 8)
Quarter: 2014Q1

REPORT INFORMATION
  Report Type: Spontaneous
  Country: US (occurrence: US)
  Receive Date: 20130322
  Receipt Date: 20140219
  Transmission Date: 20141002
  Serious: Yes (Death, Hospitalization)
  Sender: FDA-Public Use
  Company Number: US-JNJFOC-20120903326

PATIENT
  Sex: Female
  Weight: 180 kg

DRUGS (12)
  1. TYLENOL [Suspect]
     Route: 065
  2. TYLENOL [Suspect]
     Indication: PAIN
     Route: 065
  3. BENZODIAZEPINE NOS [Concomitant]
     Indication: PRODUCT USED FOR UNKNOWN INDICATION
     Route: 065
  4. OPIATES [Concomitant]
     Indication: PRODUCT USED FOR UNKNOWN INDICATION
     Route: 065
  5. GABAPENTIN [Concomitant]
     Indication: PAIN
     Route: 065
  6. GABAPENTIN [Concomitant]
     Indication: CONVULSION
     Route: 065
  7. SOMA [Concomitant]
     Indication: PAIN
     Route: 065
  8. SEROQUEL [Concomitant]
     Indication: PAIN
     Route: 065
  9. XANAX [Concomitant]
     Indication: PAIN
     Route: 065
  10. NORCO [Concomitant]
     Indication: PAIN
     Route: 065
  11. AMBIEN [Concomitant]
     Indication: SLEEP DISORDER
     Route: 065
  12. NEURONTIN [Concomitant]
     Indication: MIGRAINE
     Route: 065

REACTIONS (8)
  - Acute hepatic failure [Fatal]
  - Toxicity to various agents [Fatal]
  - Hypotension [Fatal]
  - Overdose [Fatal]
  - Renal failure acute [Not Recovered/Not Resolved]
  - Acute respiratory failure [Not Recovered/Not Resolved]
  - Encephalopathy [Unknown]
  - Coagulopathy [Unknown]
